FAERS Safety Report 4297700-3 (Version None)
Quarter: 2004Q1

REPORT INFORMATION
  Report Type: 
  Country: None (occurrence: None)
  Receive Date: 20040126
  Receipt Date: 20030918
  Transmission Date: 20041129
  Serious: No
  Sender: FDA-Public Use
  Company Number: USA030947682

PATIENT
  Age: 68 Year
  Sex: Female

DRUGS (1)
  1. STRATTERA [Suspect]
     Indication: DEPRESSION
     Dosage: 40 MG/IN THE MORNING
     Dates: start: 20030902

REACTIONS (4)
  - FATIGUE [None]
  - HEADACHE [None]
  - INSOMNIA [None]
  - PILOERECTION [None]
